FAERS Safety Report 6541735-4 (Version None)
Quarter: 2010Q1

REPORT INFORMATION
  Report Type: 
  Country: None (occurrence: None)
  Receive Date: 20100119
  Receipt Date: 20100105
  Transmission Date: 20100710
  Serious: Yes (Other)
  Sender: FDA-Public Use
  Company Number: US-SANOFI-AVENTIS-2009SA010765

PATIENT
  Age: 65 Year
  Sex: Male
  Weight: 111.36 kg

DRUGS (6)
  1. LANTUS [Suspect]
     Indication: TYPE 2 DIABETES MELLITUS
     Dosage: 10 UNITS AM AND 20 UNITS PM
     Route: 058
  2. OPTICLICK [Suspect]
     Indication: TYPE 2 DIABETES MELLITUS
  3. GLIPIZIDE [Concomitant]
     Dosage: 10 ONCE A DAY IN AM
  4. PRAVASTATIN [Concomitant]
  5. LISINOPRIL [Concomitant]
  6. FENOFIBRATE [Concomitant]

REACTIONS (4)
  - BLOOD CHOLESTEROL INCREASED [None]
  - COLORECTAL CANCER [None]
  - HYPERGLYCAEMIA [None]
  - METASTASIS [None]
